FAERS Safety Report 8107286-0 (Version None)
Quarter: 2012Q1

REPORT INFORMATION
  Report Type: 
  Country: None (occurrence: None)
  Receive Date: 20120202
  Receipt Date: 20120127
  Transmission Date: 20120608
  Serious: Yes (Other)
  Sender: FDA-Public Use
  Company Number: US-PFIZER INC-2012023387

PATIENT
  Sex: Male
  Weight: 90.703 kg

DRUGS (4)
  1. LYRICA [Suspect]
     Indication: NEURALGIA
     Dosage: 50 MG, 2X/DAY
     Dates: start: 20110701
  2. CELEXA [Concomitant]
     Indication: DEPRESSION
     Dosage: 40 MG DAILY
  3. ASCORBIC ACID [Concomitant]
     Dosage: UNK
  4. CALCIUM [Concomitant]
     Dosage: UNK

REACTIONS (3)
  - RADIAL NERVE INJURY [None]
  - FALL [None]
  - ARTERIAL INJURY [None]
